FAERS Safety Report 9353005 (Version 4)
Quarter: 2013Q4

REPORT INFORMATION
  Report Type: Spontaneous
  Country: US (occurrence: US)
  Receive Date: 20130618
  Receipt Date: 20131218
  Transmission Date: 20140711
  Serious: Yes (Life-Threatening, Hospitalization, Other)
  Sender: FDA-Public Use
  Company Number: US-ROCHE-1237817

PATIENT
  Age: 32 Year
  Sex: Male
  Weight: 83.99 kg

DRUGS (12)
  1. XOLAIR [Suspect]
     Indication: ASTHMA
     Route: 058
     Dates: start: 20130416
  2. XOLAIR [Suspect]
     Indication: DERMATITIS ATOPIC
  3. SYMBICORT [Concomitant]
     Indication: ASTHMA
     Dosage: 160/4.5
     Route: 048
  4. SYMBICORT [Concomitant]
     Indication: HYPERSENSITIVITY
  5. SINGULAIR [Concomitant]
  6. ZYRTEC [Concomitant]
     Indication: HYPERSENSITIVITY
     Route: 048
  7. ZYRTEC [Concomitant]
     Indication: ASTHMA
  8. MONTELUKAST [Concomitant]
     Indication: ASTHMA
     Route: 048
  9. MONTELUKAST [Concomitant]
     Indication: HYPERSENSITIVITY
  10. DESONIDE CREAM [Concomitant]
     Dosage: 160-4.5MCG
     Route: 061
  11. SPIRIVA [Concomitant]
     Indication: HYPERSENSITIVITY
     Route: 048
  12. SPIRIVA [Concomitant]
     Indication: ASTHMA

REACTIONS (1)
  - Pulmonary embolism [Recovering/Resolving]
